FAERS Safety Report 13926055 (Version 1)
Quarter: 2017Q3

REPORT INFORMATION
  Report Type: Spontaneous
  Country: CA (occurrence: CA)
  Receive Date: 20170831
  Receipt Date: 20170831
  Transmission Date: 20171127
  Serious: Yes (Life-Threatening)
  Sender: FDA-Public Use
  Company Number: CA-BAYER-2017-163808

PATIENT
  Age: 88 Year
  Sex: Male

DRUGS (8)
  1. ATORVASTATIN [Suspect]
     Active Substance: ATORVASTATIN
     Route: 048
  2. METFORMIN [Interacting]
     Active Substance: METFORMIN HYDROCHLORIDE
     Route: 048
  3. ACARBOSE. [Suspect]
     Active Substance: ACARBOSE
     Route: 048
  4. VALSARTAN. [Suspect]
     Active Substance: VALSARTAN
     Route: 048
  5. INDAPAMIDE. [Suspect]
     Active Substance: INDAPAMIDE
     Route: 048
  6. GLICLAZIDE [Interacting]
     Active Substance: GLICLAZIDE
     Route: 048
  7. WARFARIN [Suspect]
     Active Substance: WARFARIN
     Route: 048
  8. PERINDOPRIL [Suspect]
     Active Substance: PERINDOPRIL
     Route: 048

REACTIONS (4)
  - Hypoglycaemia [Recovered/Resolved]
  - Drug interaction [None]
  - Hyperkalaemia [Recovered/Resolved]
  - Acute kidney injury [Recovered/Resolved]
